FAERS Safety Report 8560560-6 (Version None)
Quarter: 2012Q3

REPORT INFORMATION
  Report Type: 
  Country: None (occurrence: None)
  Receive Date: 20120802
  Receipt Date: 20120719
  Transmission Date: 20120928
  Serious: No
  Sender: FDA-Public Use
  Company Number: US-ASTRAZENECA-2012SE51465

PATIENT
  Age: 52 Year
  Sex: Male

DRUGS (5)
  1. PANTOPRAZOLE [Interacting]
     Route: 065
  2. OTHER MEDICATIONS [Interacting]
     Route: 065
  3. NEXIUM [Concomitant]
  4. OMEPRAZOLE [Suspect]
     Indication: DYSPEPSIA
     Route: 048
  5. ALKA SELTZER [Concomitant]

REACTIONS (2)
  - POTENTIATING DRUG INTERACTION [None]
  - DRUG INEFFECTIVE [None]
